FAERS Safety Report 15313598 (Version 1)
Quarter: 2018Q3

REPORT INFORMATION
  Report Type: Spontaneous
  Country: ES (occurrence: ES)
  Receive Date: 20180824
  Receipt Date: 20180824
  Transmission Date: 20181010
  Serious: Yes (Hospitalization)
  Sender: FDA-Public Use
  Company Number: ES-TEVA-2018-ES-947246

PATIENT
  Age: 80 Year
  Sex: Female

DRUGS (1)
  1. METFORMINA (1359A) [Suspect]
     Active Substance: METFORMIN HYDROCHLORIDE
     Dosage: 850 MG EVERY 12 HOURS
     Route: 065
     Dates: start: 20120326, end: 20180715

REACTIONS (1)
  - Hyperlactacidaemia [Recovered/Resolved]

NARRATIVE: CASE EVENT DATE: 20180714
